FAERS Safety Report 5878295-7 (Version None)
Quarter: 2008Q3

REPORT INFORMATION
  Report Type: 
  Country: None (occurrence: None)
  Receive Date: 20080911
  Receipt Date: 20080902
  Transmission Date: 20090109
  Serious: Yes (Other)
  Sender: FDA-Public Use
  Company Number: FR-PFIZER INC-2008073931

PATIENT
  Sex: Male

DRUGS (1)
  1. SOMAVERT [Suspect]
     Dates: start: 20080501

REACTIONS (1)
  - LOSS OF CONSCIOUSNESS [None]
